FAERS Safety Report 25561534 (Version 1)
Quarter: 2025Q3

REPORT INFORMATION
  Report Type: Report from Study
  Country: EU (occurrence: EU)
  Receive Date: 20250716
  Receipt Date: 20250716
  Transmission Date: 20251021
  Serious: Yes (Other)
  Sender: ALEXION PHARMACEUTICALS
  Company Number: EU-ASTRAZENECA-202507GLO009209FR

PATIENT
  Sex: Female
  Weight: 55 kg

DRUGS (1)
  1. OSIMERTINIB [Suspect]
     Active Substance: OSIMERTINIB
     Indication: Non-small cell lung cancer metastatic
     Dosage: 40 MILLIGRAM, QD
     Dates: start: 20230124

REACTIONS (1)
  - Dermatosis [Recovered/Resolved]

NARRATIVE: CASE EVENT DATE: 20241218
